FAERS Safety Report 5660819-6 (Version None)
Quarter: 2008Q1

REPORT INFORMATION
  Report Type: 
  Country: None (occurrence: None)
  Receive Date: 20080311
  Receipt Date: 20080306
  Transmission Date: 20080703
  Serious: Yes (Death)
  Sender: FDA-Public Use
  Company Number: DE-BAYER-200810186GPV

PATIENT
  Age: 69 Year
  Sex: Male

DRUGS (6)
  1. CIPROFLOXACIN ABZ [Suspect]
     Indication: PROPHYLAXIS
     Route: 048
     Dates: start: 20070620, end: 20070622
  2. PARACETAMOL LICHTENSTEIN [Concomitant]
     Indication: DRUG USE FOR UNKNOWN INDICATION
     Route: 048
     Dates: end: 20070601
  3. TRAMADOL SUPPOSOTORIES [Concomitant]
     Indication: DRUG USE FOR UNKNOWN INDICATION
     Route: 065
     Dates: end: 20070601
  4. COAPPROVEL [Concomitant]
     Indication: DRUG USE FOR UNKNOWN INDICATION
     Route: 048
     Dates: end: 20070601
  5. NEXIUM [Concomitant]
     Indication: DRUG USE FOR UNKNOWN INDICATION
     Route: 048
     Dates: end: 20070601
  6. AMLODIPINE [Concomitant]
     Indication: DRUG USE FOR UNKNOWN INDICATION
     Route: 048
     Dates: end: 20070601

REACTIONS (1)
  - COMPLETED SUICIDE [None]
